FAERS Safety Report 6174035-5 (Version None)
Quarter: 2009Q2

REPORT INFORMATION
  Report Type: 
  Country: None (occurrence: None)
  Receive Date: 20090430
  Receipt Date: 20080222
  Transmission Date: 20091009
  Serious: No
  Sender: FDA-Public Use
  Company Number: US-ASTRAZENECA-2008UW03793

PATIENT
  Age: 62 Year
  Sex: Male

DRUGS (3)
  1. NEXIUM [Suspect]
     Indication: GASTROOESOPHAGEAL REFLUX DISEASE
     Route: 048
     Dates: start: 20071101, end: 20071201
  2. NEXIUM [Suspect]
     Dosage: TOOK ONE PILL
     Route: 048
     Dates: start: 20080101
  3. VIRAMIST [Concomitant]

REACTIONS (6)
  - ARTHRALGIA [None]
  - FATIGUE [None]
  - FIBROMYALGIA [None]
  - PAIN [None]
  - PAIN IN EXTREMITY [None]
  - THROAT IRRITATION [None]
